FAERS Safety Report 7782580-1 (Version None)
Quarter: 2011Q3

REPORT INFORMATION
  Report Type: 
  Country: None (occurrence: None)
  Receive Date: 20110927
  Receipt Date: 20110927
  Transmission Date: 20111222
  Serious: Yes (Life-Threatening)
  Sender: FDA-Public Use
  Company Number: None

PATIENT
  Age: 88 Year
  Sex: Female

DRUGS (3)
  1. EXELON [Concomitant]
  2. AMLODIPINE [Concomitant]
  3. NAMENDA [Suspect]
     Indication: DEMENTIA ALZHEIMER'S TYPE
     Dosage: 10MG PO BID

REACTIONS (2)
  - RESTLESSNESS [None]
  - SELF INJURIOUS BEHAVIOUR [None]
